FAERS Safety Report 5208683-3 (Version None)
Quarter: 2007Q1

REPORT INFORMATION
  Report Type: 
  Country: None (occurrence: None)
  Receive Date: 20070116
  Receipt Date: 20070109
  Transmission Date: 20070707
  Serious: Yes (Other)
  Sender: FDA-Public Use
  Company Number: US-JNJFOC-20061104811

PATIENT
  Sex: Female
  Weight: 73.94 kg

DRUGS (5)
  1. REMICADE [Suspect]
     Route: 042
  2. REMICADE [Suspect]
     Route: 042
  3. REMICADE [Suspect]
     Route: 042
  4. REMICADE [Suspect]
     Indication: RHEUMATOID ARTHRITIS
     Route: 042
  5. PRILOSEC [Concomitant]
     Dosage: 2 DOSES PER DAY, DURATION 1 YEAR

REACTIONS (2)
  - FOOT OPERATION [None]
  - JOINT SURGERY [None]
